FAERS Safety Report 8221722-0 (Version None)
Quarter: 2012Q1

REPORT INFORMATION
  Report Type: 
  Country: None (occurrence: None)
  Receive Date: 20120320
  Receipt Date: 20120312
  Transmission Date: 20120608
  Serious: Yes (Other)
  Sender: FDA-Public Use
  Company Number: US-BAYER-2011-075519

PATIENT
  Age: 30 Year
  Sex: Female
  Weight: 66 kg

DRUGS (15)
  1. YASMIN [Suspect]
     Indication: CONTRACEPTION
     Dosage: UNK
     Dates: start: 20040101, end: 20090101
  2. ZYRTEC [Concomitant]
  3. WELLBUTRIN [Concomitant]
     Indication: ANXIETY
     Dosage: UNK
     Dates: start: 20080601, end: 20090101
  4. MULTI-VITAMIN [Concomitant]
  5. LAMOTRIGINE [Concomitant]
     Indication: ANXIETY
     Dosage: UNK
     Dates: start: 20080601, end: 20090101
  6. WELLBUTRIN [Concomitant]
     Indication: DEPRESSION
  7. DROSPIRENONE AND ETHINYL ESTRADIOL [Suspect]
     Indication: CONTRACEPTION
     Dosage: UNK
     Dates: start: 20040101, end: 20090101
  8. CRANBERRY [Concomitant]
  9. CALCIUM CARBONATE [Concomitant]
  10. ALEVE (CAPLET) [Concomitant]
  11. IBUPROFEN (ADVIL) [Concomitant]
  12. PRILOSEC [Concomitant]
     Indication: GASTRIC PH DECREASED
     Dosage: UNK
     Dates: start: 20090101
  13. ACETAMINOPHEN [Concomitant]
  14. LAMOTRIGINE [Concomitant]
     Indication: DEPRESSION
  15. ACIPHEX [Concomitant]
     Indication: GASTRIC PH DECREASED
     Dosage: UNK
     Dates: start: 20070101, end: 20090101

REACTIONS (3)
  - EMOTIONAL DISTRESS [None]
  - CHOLECYSTITIS CHRONIC [None]
  - GALLBLADDER DISORDER [None]
